FAERS Safety Report 8015355-9 (Version None)
Quarter: 2011Q4

REPORT INFORMATION
  Report Type: 
  Country: None (occurrence: None)
  Receive Date: 20111230
  Receipt Date: 20110922
  Transmission Date: 20120403
  Serious: No
  Sender: FDA-Public Use
  Company Number: US-BAYER-2011-084959

PATIENT
  Sex: Female

DRUGS (1)
  1. CLIMARA PRO [Suspect]
     Indication: HOT FLUSH
     Dosage: UNK
     Route: 062
     Dates: start: 20110722, end: 20110801

REACTIONS (3)
  - DIZZINESS [None]
  - RASH MACULAR [None]
  - HEADACHE [None]
